FAERS Safety Report 23835407 (Version 1)
Quarter: 2024Q2

REPORT INFORMATION
  Report Type: Spontaneous
  Country: US (occurrence: US)
  Receive Date: 20240509
  Receipt Date: 20240509
  Transmission Date: 20240715
  Serious: No
  Sender: FDA-Public Use
  Company Number: US-MYLANLABS-2024M1039085

PATIENT

DRUGS (1)
  1. PERFOROMIST [Suspect]
     Active Substance: FORMOTEROL FUMARATE DIHYDRATE
     Indication: Product used for unknown indication
     Dosage: UNK
     Route: 065

REACTIONS (4)
  - Chest discomfort [Unknown]
  - Dyspnoea [Unknown]
  - Reaction to excipient [Unknown]
  - Product substitution issue [Unknown]
